FAERS Safety Report 10513893 (Version 1)
Quarter: 2014Q4

REPORT INFORMATION
  Report Type: Spontaneous
  Country: US (occurrence: US)
  Receive Date: 20141013
  Receipt Date: 20141013
  Transmission Date: 20150528
  Serious: Yes (Hospitalization, Other)
  Sender: FDA-Public Use
  Company Number: US-GLAXOSMITHKLINE-US2014GSK005368

PATIENT
  Age: 61 Year
  Sex: Male

DRUGS (7)
  1. VALPROATE [Concomitant]
     Active Substance: VALPROATE SODIUM
  2. SYNTHROID [Concomitant]
     Active Substance: LEVOTHYROXINE SODIUM
  3. PROBIOTIC [Concomitant]
     Active Substance: PROBIOTICS NOS
  4. ADVAIR HFA [Suspect]
     Active Substance: FLUTICASONE PROPIONATE\SALMETEROL XINAFOATE
     Indication: EMPHYSEMA
     Dosage: 1 PUFF, BID
     Dates: start: 201206, end: 20130613
  5. PRILOSEC [Concomitant]
     Active Substance: OMEPRAZOLE MAGNESIUM
  6. CLONAZEPAM. [Concomitant]
     Active Substance: CLONAZEPAM
  7. ADVAIR HFA [Suspect]
     Active Substance: FLUTICASONE PROPIONATE\SALMETEROL XINAFOATE
     Indication: CHRONIC OBSTRUCTIVE PULMONARY DISEASE

REACTIONS (3)
  - Loss of consciousness [Recovered/Resolved]
  - Pneumonia [Recovered/Resolved]
  - Fall [Recovered/Resolved]

NARRATIVE: CASE EVENT DATE: 20130603
